FAERS Safety Report 18761386 (Version 4)
Quarter: 2021Q1

REPORT INFORMATION
  Report Type: Report from Study
  Country: US (occurrence: US)
  Receive Date: 20210120
  Receipt Date: 20210309
  Transmission Date: 20210419
  Serious: Yes (Death, Hospitalization, Other)
  Sender: FDA-Public Use
  Company Number: US-GILEAD-2020-0510346

PATIENT
  Age: 19 Year
  Sex: Female
  Weight: 47.9 kg

DRUGS (4)
  1. UPTRAVI [Concomitant]
     Active Substance: SELEXIPAG
  2. OXYGEN. [Concomitant]
     Active Substance: OXYGEN
     Dosage: 8L
  3. AMBRISENTAN [Suspect]
     Active Substance: AMBRISENTAN
     Indication: PULMONARY ARTERIAL HYPERTENSION
     Dosage: 10 MG, QD
     Route: 048
     Dates: start: 20190725, end: 20210202
  4. SILDENAFIL. [Concomitant]
     Active Substance: SILDENAFIL
     Dosage: 10 UNK
     Route: 065

REACTIONS (10)
  - Death [Fatal]
  - Pain in extremity [Unknown]
  - Oxygen consumption increased [Not Recovered/Not Resolved]
  - Headache [Unknown]
  - Chest pain [Unknown]
  - Cough [Not Recovered/Not Resolved]
  - Dyspnoea [Unknown]
  - Vomiting [Unknown]
  - Peripheral swelling [Not Recovered/Not Resolved]
  - Dizziness [Not Recovered/Not Resolved]
